FAERS Safety Report 5709950-7 (Version None)
Quarter: 2008Q2

REPORT INFORMATION
  Report Type: 
  Country: None (occurrence: None)
  Receive Date: 20080418
  Receipt Date: 20070614
  Transmission Date: 20081010
  Serious: No
  Sender: FDA-Public Use
  Company Number: US-ASTRAZENECA-2007UW14263

PATIENT
  Age: 53 Year
  Sex: Male
  Weight: 74.8 kg

DRUGS (5)
  1. TOPROL-XL [Suspect]
     Indication: HYPERTENSION
     Route: 048
     Dates: start: 20060901, end: 20061001
  2. TOPROL-XL [Suspect]
     Route: 048
     Dates: start: 20061001
  3. ASCORBIC ACID [Concomitant]
  4. BENADRYL [Concomitant]
     Route: 061
  5. VITAMIN E OIL [Concomitant]
     Route: 061

REACTIONS (7)
  - CHEST DISCOMFORT [None]
  - COUGH [None]
  - DIZZINESS [None]
  - DRY SKIN [None]
  - DYSGEUSIA [None]
  - HYPERTENSION [None]
  - PRURITUS [None]
